FAERS Safety Report 16040818 (Version 1)
Quarter: 2019Q2

REPORT INFORMATION
  Report Type: Spontaneous
  Country: US (occurrence: US)
  Receive Date: 20190305
  Receipt Date: 20190305
  Transmission Date: 20190711
  Serious: Yes (Other)
  Sender: FDA-Public Use
  Company Number: None

PATIENT
  Age: 72 Year
  Sex: Female
  Weight: 103.5 kg

DRUGS (10)
  1. OMEPREZOLE [Concomitant]
     Active Substance: OMEPRAZOLE
  2. ALLEGRA [Concomitant]
     Active Substance: FEXOFENADINE HYDROCHLORIDE
  3. FLUROSEMIDE [Concomitant]
  4. MONTELUKAST [Concomitant]
     Active Substance: MONTELUKAST SODIUM
  5. ATORVASTATIN [Concomitant]
     Active Substance: ATORVASTATIN
  6. BABY ASPIRIN [Concomitant]
     Active Substance: ASPIRIN
  7. FLUOROURACIL CREAM 5% [Suspect]
     Active Substance: FLUOROURACIL
     Indication: PRECANCEROUS SKIN LESION
     Dosage: ?          QUANTITY:1 DROP(S);?
     Route: 061
     Dates: start: 20190223, end: 20190303
  8. METROPOLOL [Concomitant]
     Active Substance: METOPROLOL
  9. IBUPROFEN. [Concomitant]
     Active Substance: IBUPROFEN
  10. BENAZEPRIL HYDROCHLORIDE AND HYDROCHLOROTHIAZIDE [Concomitant]
     Active Substance: BENAZEPRIL HYDROCHLORIDE\HYDROCHLOROTHIAZIDE

REACTIONS (6)
  - Application site swelling [None]
  - Pharyngeal swelling [None]
  - Application site rash [None]
  - Application site pruritus [None]
  - Diarrhoea [None]
  - Swollen tongue [None]

NARRATIVE: CASE EVENT DATE: 20190302
